FAERS Safety Report 4762418-7 (Version None)
Quarter: 2005Q3

REPORT INFORMATION
  Report Type: 
  Country: None (occurrence: None)
  Receive Date: 20050907
  Receipt Date: 20050325
  Transmission Date: 20060218
  Serious: No
  Sender: FDA-Public Use
  Company Number: 200510919JP

PATIENT
  Age: 60 Year
  Sex: Female
  Weight: 44 kg

DRUGS (8)
  1. TAXOTERE [Suspect]
     Indication: NASOPHARYNGEAL CANCER RECURRENT
     Route: 041
     Dates: start: 20050224, end: 20050224
  2. CARBOPLATIN [Concomitant]
     Indication: NASOPHARYNGEAL CANCER RECURRENT
     Route: 042
     Dates: start: 20050224, end: 20050224
  3. NEUTROGIN [Concomitant]
     Indication: WHITE BLOOD CELL COUNT DECREASED
     Route: 058
     Dates: start: 20050303, end: 20050306
  4. DECADRON [Concomitant]
     Indication: NAUSEA
     Route: 048
     Dates: start: 20050223, end: 20050301
  5. ALLELOCK [Concomitant]
     Indication: NAUSEA
     Route: 048
     Dates: start: 20050223, end: 20050227
  6. ZOFRAN [Concomitant]
     Indication: NAUSEA
     Route: 048
     Dates: start: 20050224, end: 20050227
  7. NAUZELIN [Concomitant]
     Indication: NAUSEA
     Route: 048
     Dates: start: 20050224, end: 20050227
  8. PZC [Concomitant]
     Indication: NAUSEA
     Route: 048
     Dates: start: 20050224, end: 20050227

REACTIONS (3)
  - CONJUNCTIVITIS [None]
  - DYSPHONIA [None]
  - PHOTOPHOBIA [None]
